FAERS Safety Report 17117411 (Version 1)
Quarter: 2019Q4

REPORT INFORMATION
  Report Type: Spontaneous
  Country: GB (occurrence: GB)
  Receive Date: 20191205
  Receipt Date: 20191205
  Transmission Date: 20200122
  Serious: Yes (Disabling)
  Sender: FDA-Public Use
  Company Number: GB-ASTRAZENECA-2019SF70200

PATIENT
  Age: 76 Year
  Sex: Male
  Weight: 75.4 kg

DRUGS (8)
  1. AMLODIPINE [Concomitant]
     Active Substance: AMLODIPINE BESYLATE
  2. PREGABALIN. [Concomitant]
     Active Substance: PREGABALIN
  3. COTRIMOXAZOLE [Concomitant]
     Active Substance: SULFAMETHOXAZOLE\TRIMETHOPRIM
  4. ACETYLSALICYLIC ACID [Concomitant]
     Active Substance: ASPIRIN
  5. CANDESARTAN. [Concomitant]
     Active Substance: CANDESARTAN
  6. PREDNISOLONE. [Concomitant]
     Active Substance: PREDNISOLONE
  7. DURVALUMAB. [Suspect]
     Active Substance: DURVALUMAB
     Indication: ADJUVANT THERAPY
     Route: 042
     Dates: start: 20191011, end: 20191106
  8. OMEPRAZOLE. [Concomitant]
     Active Substance: OMEPRAZOLE

REACTIONS (3)
  - Blindness [Unknown]
  - Optic ischaemic neuropathy [Not Recovered/Not Resolved]
  - Retinal artery occlusion [Unknown]
